FAERS Safety Report 7451972-2 (Version None)
Quarter: 2011Q2

REPORT INFORMATION
  Report Type: 
  Country: None (occurrence: None)
  Receive Date: 20110502
  Receipt Date: 20110426
  Transmission Date: 20111010
  Serious: Yes (Hospitalization)
  Sender: FDA-Public Use
  Company Number: PHHY2011GB34826

PATIENT
  Age: 88 Year
  Sex: Female

DRUGS (6)
  1. ATENOLOL [Concomitant]
     Dosage: 50 MG, QD
     Route: 048
  2. LEVOTHYROXINE [Concomitant]
     Dosage: 125 UG, QD
     Route: 048
  3. SIMVASTATIN [Concomitant]
     Dosage: 20 MG, QD
     Route: 048
  4. RAMIPRIL [Suspect]
     Dosage: 10 MG, QD
     Route: 048
     Dates: end: 20110323
  5. DOXAZOSIN MESYLATE [Concomitant]
     Dosage: 4 MG, QD
     Route: 048
  6. OMEPRAZOLE [Concomitant]
     Dosage: 20 MG, QD
     Route: 048

REACTIONS (4)
  - ESCHERICHIA TEST POSITIVE [None]
  - URINARY TRACT INFECTION [None]
  - BLOOD POTASSIUM INCREASED [None]
  - RENAL FAILURE ACUTE [None]
